FAERS Safety Report 10145821 (Version 1)
Quarter: 2014Q2

REPORT INFORMATION
  Report Type: Spontaneous
  Country: US (occurrence: US)
  Receive Date: 20140501
  Receipt Date: 20140501
  Transmission Date: 20141212
  Serious: No
  Sender: FDA-Public Use
  Company Number: US-ABBVIE-13P-163-1153380-00

PATIENT
  Sex: Male

DRUGS (3)
  1. CREON [Suspect]
     Indication: NEUROENDOCRINE TUMOUR
     Dates: start: 201308, end: 201309
  2. CREON [Suspect]
     Indication: NEUROENDOCRINE TUMOUR
     Dates: start: 2012, end: 201308
  3. CREON [Suspect]
     Dates: start: 201309

REACTIONS (1)
  - Blood glucose increased [Recovered/Resolved]
